FAERS Safety Report 25013354 (Version 2)
Quarter: 2025Q1

REPORT INFORMATION
  Report Type: Report from Study
  Country: CA (occurrence: CA)
  Receive Date: 20250226
  Receipt Date: 20250304
  Transmission Date: 20250408
  Serious: Yes (Other)
  Sender: TAKEDA
  Company Number: CA-TAKEDA-2017TUS011138

PATIENT
  Sex: Female

DRUGS (8)
  1. VEDOLIZUMAB [Suspect]
     Active Substance: VEDOLIZUMAB
     Indication: Crohn^s disease
  2. VEDOLIZUMAB [Suspect]
     Active Substance: VEDOLIZUMAB
  3. VEDOLIZUMAB [Suspect]
     Active Substance: VEDOLIZUMAB
  4. PREDNISONE [Concomitant]
     Active Substance: PREDNISONE
     Indication: Drug dependence
  5. Cortiment [Concomitant]
  6. IMURAN [Concomitant]
     Active Substance: AZATHIOPRINE
     Dosage: 2.5 MG/KG, QD
     Dates: start: 2014
  7. CITALOPRAM [Concomitant]
     Active Substance: CITALOPRAM
  8. Calcite [Concomitant]

REACTIONS (3)
  - Peritonsillar abscess [Recovering/Resolving]
  - Pharyngitis streptococcal [Recovered/Resolved]
  - Diarrhoea [Unknown]
